FAERS Safety Report 4425623-5 (Version None)
Quarter: 2004Q3

REPORT INFORMATION
  Report Type: 
  Country: None (occurrence: None)
  Receive Date: 20040716
  Receipt Date: 20030821
  Transmission Date: 20050211
  Serious: Yes (Other)
  Sender: FDA-Public Use
  Company Number: HQWYE333625AUG03

PATIENT
  Age: 65 Year
  Sex: Female
  Weight: 77.18 kg

DRUGS (10)
  1. ADVIL [Suspect]
     Indication: PLANTAR FASCIITIS
     Dosage: 2 TABLET 1X PER 1 DAY, ORAL
     Route: 048
     Dates: start: 20030820, end: 20030820
  2. ACIDOPHILUS ^ZYMA^ (LACTOBACILLUS ACIDOPHILUS) [Concomitant]
  3. GLUCOSAMINE (GLUCOSAMINE) [Concomitant]
  4. UNSPECIFIED HERBAL PRODUCT (UNSPECIFIED HERBAL PRODUCT) [Concomitant]
  5. FISH OIL, HYDROGENATED (FISH OIL, HYDROGENATED) [Concomitant]
  6. MULTIVITAMINS (ASCORBIC ACID/ERGOCALCIFEROL/FOLIC ACID/NICOTINAMIDE/PA [Concomitant]
  7. COENZYME Q10 [Concomitant]
  8. ASPIRIN [Concomitant]
  9. LIPITOR [Concomitant]
  10. DIOVAN [Concomitant]

REACTIONS (1)
  - HYPERSENSITIVITY [None]
